FAERS Safety Report 5053686-5 (Version None)
Quarter: 2006Q3

REPORT INFORMATION
  Report Type: 
  Country: None (occurrence: None)
  Receive Date: 20060718
  Receipt Date: 20050525
  Transmission Date: 20061208
  Serious: Yes (Hospitalization, Disabling)
  Sender: FDA-Public Use
  Company Number: US-ROCHE-405864

PATIENT
  Age: 22 Year
  Sex: Female
  Weight: 52.2 kg

DRUGS (4)
  1. ACCUTANE [Suspect]
     Route: 048
     Dates: start: 19960610, end: 19960702
  2. ACCUTANE [Suspect]
     Dosage: REPORTED AS '40MG A/W 80MG' AND CLARIFIED AS 'ALTERNATING 40 MG AND 80 MG EVERY OTHER DAY'
     Route: 048
     Dates: start: 19960702, end: 19960716
  3. ACCUTANE [Suspect]
     Route: 048
     Dates: start: 19960716, end: 19961114
  4. ACCUTANE [Suspect]
     Route: 048
     Dates: start: 19981209, end: 19990212

REACTIONS (27)
  - ACNE [None]
  - APPENDICITIS [None]
  - ARTHRALGIA [None]
  - AUTOIMMUNE THYROIDITIS [None]
  - BACK PAIN [None]
  - CHAPPED LIPS [None]
  - COLITIS [None]
  - COLITIS ULCERATIVE [None]
  - DEPRESSION [None]
  - DRY SKIN [None]
  - DYSPEPSIA [None]
  - EPISTAXIS [None]
  - GASTROINTESTINAL DISORDER [None]
  - ILL-DEFINED DISORDER [None]
  - INFLAMMATORY BOWEL DISEASE [None]
  - INTERVERTEBRAL DISC DEGENERATION [None]
  - INTESTINAL HAEMORRHAGE [None]
  - MULTI-ORGAN DISORDER [None]
  - MYALGIA [None]
  - NIGHT BLINDNESS [None]
  - PREMENSTRUAL SYNDROME [None]
  - PROCTITIS [None]
  - RADICULOPATHY [None]
  - RECTAL HAEMORRHAGE [None]
  - SPONDYLITIS [None]
  - STRESS [None]
  - VITREOUS FLOATERS [None]
